FAERS Safety Report 7335374-5 (Version None)
Quarter: 2011Q1

REPORT INFORMATION
  Report Type: 
  Country: None (occurrence: None)
  Receive Date: 20110228
  Receipt Date: 20101215
  Transmission Date: 20110831
  Serious: Yes (Other)
  Sender: FDA-Public Use
  Company Number: US-000360

PATIENT
  Sex: Female

DRUGS (1)
  1. TRAZODONE HCL [Suspect]
     Indication: MAJOR DEPRESSION

REACTIONS (1)
  - SUICIDAL IDEATION [None]
